FAERS Safety Report 4479033-5 (Version None)
Quarter: 2004Q4

REPORT INFORMATION
  Report Type: 
  Country: None (occurrence: None)
  Receive Date: 20040923
  Receipt Date: 20040804
  Transmission Date: 20050328
  Serious: No
  Sender: FDA-Public Use
  Company Number: 208238

PATIENT
  Age: 33 Year
  Sex: Male

DRUGS (1)
  1. AVASTIN [Suspect]
     Indication: COLON CANCER METASTATIC
     Dosage: SEE IMAGE
     Route: 042
     Dates: start: 20040526

REACTIONS (1)
  - ERECTILE DYSFUNCTION [None]
